FAERS Safety Report 18570387 (Version 1)
Quarter: 2020Q4

REPORT INFORMATION
  Report Type: Report from Study
  Country: US (occurrence: US)
  Receive Date: 20201202
  Receipt Date: 20201202
  Transmission Date: 20210114
  Serious: Yes (Other)
  Sender: FDA-Public Use
  Company Number: US-GW PHARMA-201605USGW0286

PATIENT

DRUGS (19)
  1. ADDERALL [Concomitant]
     Active Substance: AMPHETAMINE ASPARTATE\AMPHETAMINE SULFATE\DEXTROAMPHETAMINE SACCHARATE\DEXTROAMPHETAMINE SULFATE
     Indication: ATTENTION DEFICIT HYPERACTIVITY DISORDER
     Dosage: 10 MILLIGRAM, BID
     Route: 050
     Dates: start: 20111103
  2. CATAPRES [Concomitant]
     Active Substance: CLONIDINE HYDROCHLORIDE
     Indication: LENNOX-GASTAUT SYNDROME
     Dosage: 0.1 MILLIGRAM, TID
     Route: 050
     Dates: start: 20120418
  3. KLONOPIN [Concomitant]
     Active Substance: CLONAZEPAM
     Dosage: BEDTIME
     Route: 050
     Dates: start: 20081117
  4. KEPPRA [Concomitant]
     Active Substance: LEVETIRACETAM
     Dosage: BEDTIME
     Route: 050
     Dates: start: 20150413
  5. DEPAKENE [Concomitant]
     Active Substance: VALPROIC ACID
     Indication: LENNOX-GASTAUT SYNDROME
     Dosage: AM
     Route: 050
     Dates: start: 20140926, end: 20160527
  6. ZONEGRAN [Concomitant]
     Active Substance: ZONISAMIDE
     Indication: LENNOX-GASTAUT SYNDROME
     Dosage: 300 MILLIGRAM, BID
     Route: 050
     Dates: start: 201106
  7. DEPAKENE [Concomitant]
     Active Substance: VALPROIC ACID
     Dosage: BEDTIME
     Route: 050
     Dates: start: 20140926, end: 20160526
  8. ULTRAM [Concomitant]
     Active Substance: TRAMADOL HYDROCHLORIDE
     Indication: HEADACHE
     Dosage: 25 MILLIGRAM, QD
     Route: 050
     Dates: start: 20150825
  9. CARNITOR [Concomitant]
     Active Substance: LEVOCARNITINE
     Indication: SUPPLEMENTATION THERAPY
     Dosage: 330 MILLIGRAM, TID
     Route: 050
     Dates: start: 2011
  10. EPIDIOLEX [Suspect]
     Active Substance: CANNABIDIOL
     Indication: LENNOX-GASTAUT SYNDROME
     Dosage: 960 MILLIGRAM, QD
     Route: 048
     Dates: start: 20160426, end: 20160609
  11. KEPPRA [Concomitant]
     Active Substance: LEVETIRACETAM
     Dosage: PM
     Route: 050
     Dates: start: 20150413
  12. DEPAKENE [Concomitant]
     Active Substance: VALPROIC ACID
     Dosage: PM
     Route: 050
     Dates: start: 20140926, end: 20160527
  13. KLONOPIN [Concomitant]
     Active Substance: CLONAZEPAM
     Indication: LENNOX-GASTAUT SYNDROME
     Dosage: 2 MILLIGRAM, BID
     Route: 050
     Dates: start: 20081117
  14. DEPAKENE [Concomitant]
     Active Substance: VALPROIC ACID
     Dosage: QHS
     Route: 050
     Dates: start: 20160527
  15. DEPAKENE [Concomitant]
     Active Substance: VALPROIC ACID
     Dosage: QAM
     Route: 050
     Dates: start: 20160528
  16. DIASTAT [Concomitant]
     Active Substance: DIAZEPAM
     Indication: LENNOX-GASTAUT SYNDROME
     Dosage: 0.2 MILLIGRAM, PRN
     Route: 050
     Dates: start: 20110625
  17. PERIACTIN [Concomitant]
     Active Substance: CYPROHEPTADINE HYDROCHLORIDE
     Indication: APPETITE DISORDER
     Dosage: 10 MILLIGRAM, BID
     Route: 050
     Dates: start: 20120611
  18. KEPPRA [Concomitant]
     Active Substance: LEVETIRACETAM
     Indication: LENNOX-GASTAUT SYNDROME
     Dosage: AM
     Route: 050
     Dates: start: 20150413
  19. DEPAKENE [Concomitant]
     Active Substance: VALPROIC ACID
     Dosage: QPM
     Route: 050
     Dates: start: 20160528

REACTIONS (2)
  - Aspartate aminotransferase increased [Recovered/Resolved]
  - Alanine aminotransferase increased [Recovered/Resolved]

NARRATIVE: CASE EVENT DATE: 20160526
